FAERS Safety Report 10314020 (Version 1)
Quarter: 2014Q3

REPORT INFORMATION
  Report Type: Spontaneous
  Country: AU (occurrence: AU)
  Receive Date: 20140718
  Receipt Date: 20140718
  Transmission Date: 20150326
  Serious: Yes (Hospitalization, Other)
  Sender: FDA-Public Use
  Company Number: AU-ACTAVIS PTY LTD-2014-15406

PATIENT
  Age: 66 Year
  Sex: Male
  Weight: 80 kg

DRUGS (5)
  1. MOXONIDINE (UNKNOWN) [Suspect]
     Active Substance: MOXONIDINE
     Indication: SUICIDE ATTEMPT
     Dosage: 12 MG, SINGLE
     Route: 048
  2. AMLODIPINE [Suspect]
     Active Substance: AMLODIPINE BESYLATE
     Indication: SUICIDE ATTEMPT
     Dosage: 150 MG, SINGLE
     Route: 048
  3. DABIGATRAN [Suspect]
     Active Substance: DABIGATRAN
     Indication: SUICIDE ATTEMPT
     Dosage: 9 G, SINGLE
     Route: 048
  4. METOPROLOL (UNKNOWN) [Suspect]
     Active Substance: METOPROLOL
     Indication: SUICIDE ATTEMPT
     Dosage: 5 G, SINGLE
     Route: 048
  5. OLMESARTAN MEDOXOMIL (UNKNOWN) [Suspect]
     Active Substance: OLMESARTAN MEDOXOMIL
     Indication: SUICIDE ATTEMPT
     Dosage: 600 MG, SINGLE
     Route: 048

REACTIONS (4)
  - Suicide attempt [Recovered/Resolved]
  - Overdose [Recovered/Resolved]
  - Hypotension [Recovered/Resolved]
  - Bradycardia [Recovered/Resolved]
